FAERS Safety Report 5492430-4 (Version None)
Quarter: 2007Q4

REPORT INFORMATION
  Report Type: 
  Country: None (occurrence: None)
  Receive Date: 20071015
  Receipt Date: 20070809
  Transmission Date: 20080405
  Serious: No
  Sender: FDA-Public Use
  Company Number: 2007SP002839

PATIENT
  Age: 61 Year
  Sex: Female
  Weight: 90.2658 kg

DRUGS (2)
  1. LUNESTA [Suspect]
     Indication: INSOMNIA
     Dosage: 2 MG; HS; ORAL
     Route: 048
     Dates: start: 20070701, end: 20070701
  2. ANTIHYPERTENSIVES [Concomitant]

REACTIONS (2)
  - DYSGEUSIA [None]
  - HEADACHE [None]
